FAERS Safety Report 5637699-8 (Version None)
Quarter: 2008Q1

REPORT INFORMATION
  Report Type: 
  Country: None (occurrence: None)
  Receive Date: 20080220
  Receipt Date: 20080208
  Transmission Date: 20080703
  Serious: Yes (Hospitalization, Other)
  Sender: FDA-Public Use
  Company Number: 2007-169622-NL

PATIENT
  Age: 38 Year
  Sex: Female
  Weight: 58.75 kg

DRUGS (15)
  1. PUREGON [Suspect]
     Dosage: 150 IU DAILY INTRAMUSCULAR
     Route: 030
     Dates: start: 20070823, end: 20070823
  2. PUREGON [Suspect]
     Dosage: 150 IU DAILY SUBCUTANEOUS
     Route: 058
     Dates: start: 20070825, end: 20070825
  3. PUREGON [Suspect]
     Indication: OVARIAN HYPERSTIMULATION SYNDROME
     Dosage: 150 IU DAILY SUBCUTANEOUS
     Route: 058
     Dates: start: 20070827, end: 20070831
  4. HUMEGON [Suspect]
     Indication: OVARIAN HYPERSTIMULATION SYNDROME
     Dosage: 150 IU DAILY INTRAMUSCULAR
     Route: 030
     Dates: start: 20070901, end: 20070902
  5. PREGNYL [Suspect]
     Indication: BLOOD LUTEINISING HORMONE
     Dosage: 10000 IU ONCE INTRAMUSCULAR
     Route: 030
     Dates: start: 20070902, end: 20070902
  6. PREGNYL [Suspect]
     Indication: OVARIAN HYPERSTIMULATION SYNDROME
     Dosage: 10000 IU ONCE INTRAMUSCULAR
     Route: 030
     Dates: start: 20070902, end: 20070902
  7. PREGNYL [Suspect]
     Indication: BLOOD LUTEINISING HORMONE
     Dosage: 5000 IU ONCE INTRAMUSCULAR
     Route: 030
     Dates: start: 20070904, end: 20070904
  8. PREGNYL [Suspect]
     Indication: BLOOD LUTEINISING HORMONE
     Dosage: 5000 IU ONCE INTRAMUSCULAR
     Route: 030
     Dates: start: 20070907, end: 20070907
  9. PREDONINE [Concomitant]
  10. BUFFERIN [Concomitant]
  11. SEROPHENE [Concomitant]
  12. CETROTIDE [Concomitant]
  13. NORGESTREL AND ETHINYL ESTRADIOL [Concomitant]
  14. PROGE DEPOT [Concomitant]
  15. OVAHORMON [Concomitant]

REACTIONS (2)
  - ABORTION SPONTANEOUS [None]
  - DRUG EXPOSURE DURING PREGNANCY [None]
